FAERS Safety Report 5795644-9 (Version None)
Quarter: 2008Q2

REPORT INFORMATION
  Report Type: 
  Country: None (occurrence: None)
  Receive Date: 20080630
  Receipt Date: 20080620
  Transmission Date: 20081010
  Serious: Yes (Hospitalization)
  Sender: FDA-Public Use
  Company Number: US-MERCK-0804USA03226

PATIENT
  Age: 57 Year
  Sex: Male

DRUGS (4)
  1. SINGULAIR [Suspect]
     Route: 048
  2. ALPRAZOLAM [Concomitant]
     Route: 048
  3. AMLODIPINE BESYLATE AND BENAZEPRIL HYDROCHLORIDE [Concomitant]
     Route: 048
  4. NABUMETONE [Concomitant]
     Route: 048

REACTIONS (1)
  - ANAEMIA HAEMOLYTIC AUTOIMMUNE [None]
